FAERS Safety Report 20256129 (Version 1)
Quarter: 2021Q4

REPORT INFORMATION
  Report Type: Spontaneous
  Country: US (occurrence: None)
  Receive Date: 20211229
  Receipt Date: 20211229
  Transmission Date: 20220303
  Serious: Yes (Death)
  Sender: FDA-Public Use
  Company Number: None

PATIENT
  Age: 80 Year
  Sex: Female

DRUGS (1)
  1. MEKTOVI [Suspect]
     Active Substance: BINIMETINIB
     Dosage: 30MG BID ORAL?
     Route: 048
     Dates: start: 202111, end: 202112

REACTIONS (1)
  - Death [None]

NARRATIVE: CASE EVENT DATE: 20211228
